FAERS Safety Report 8857024 (Version 1)
Quarter: 2012Q4

REPORT INFORMATION
  Report Type: 
  Country: US (occurrence: US)
  Receive Date: 20121023
  Receipt Date: 20121023
  Transmission Date: 20130627
  Serious: No
  Sender: FDA-Public Use
  Company Number: US-AMGEN-USASP2012055746

PATIENT
  Age: 75 Year
  Sex: Male
  Weight: 85.3 kg

DRUGS (1)
  1. ENBREL [Suspect]
     Indication: PSORIATIC ARTHROPATHY
     Dosage: 50 mg, 2 times/wk
     Route: 058
     Dates: start: 20120126, end: 201208

REACTIONS (2)
  - Therapeutic response decreased [Unknown]
  - Injection site bruising [Unknown]
